FAERS Safety Report 19681091 (Version 1)
Quarter: 2021Q3

REPORT INFORMATION
  Report Type: Report from Study
  Country: CN (occurrence: CN)
  Receive Date: 20210810
  Receipt Date: 20210810
  Transmission Date: 20211014
  Serious: Yes (Other)
  Sender: FDA-Public Use
  Company Number: CN-BAYER-2021-183785

PATIENT
  Sex: Female

DRUGS (3)
  1. DROSPIRENONE 3MG + ETHINYLESTRADIOL 0.02MG (24+4) [Suspect]
     Active Substance: DROSPIRENONE\ETHINYL ESTRADIOL
     Indication: POLYCYSTIC OVARIES
     Dosage: 1 DF, QD
     Route: 048
  2. METFORMIN [Concomitant]
     Active Substance: METFORMIN HYDROCHLORIDE
     Indication: METABOLIC DISORDER
     Dosage: 0.25 G, BID
     Route: 048
  3. METFORMIN [Concomitant]
     Active Substance: METFORMIN HYDROCHLORIDE
     Indication: LIPID METABOLISM DISORDER

REACTIONS (1)
  - Liver injury [None]
